FAERS Safety Report 9061306 (Version 1)
Quarter: 2013Q3

REPORT INFORMATION
  Report Type: Spontaneous
  Country: US (occurrence: None)
  Receive Date: 20130208
  Receipt Date: 20130208
  Transmission Date: 20140515
  Serious: Yes (Hospitalization)
  Sender: FDA-Public Use
  Company Number: None

PATIENT
  Age: 56 Year
  Sex: Female
  Weight: 45.81 kg

DRUGS (6)
  1. DACOMITINIB [Suspect]
     Indication: GLIOBLASTOMA
     Route: 048
     Dates: start: 20121107, end: 20121204
  2. KEPPRA [Concomitant]
  3. LAMICTAL [Concomitant]
  4. OMEPRAZOLE [Concomitant]
  5. DECADRON [Concomitant]
  6. CEREBRAL EDEMA PROPHYLAXIS [Concomitant]

REACTIONS (5)
  - Glioblastoma [None]
  - Malignant neoplasm progression [None]
  - Convulsion [None]
  - Muscular weakness [None]
  - Aphasia [None]
